FAERS Safety Report 20020165 (Version 3)
Quarter: 2024Q1

REPORT INFORMATION
  Report Type: Spontaneous
  Country: FR (occurrence: FR)
  Receive Date: 20211101
  Receipt Date: 20240313
  Transmission Date: 20240410
  Serious: Yes (Other)
  Sender: FDA-Public Use
  Company Number: None

PATIENT
  Age: 46 Year
  Sex: Male
  Weight: 96 kg

DRUGS (5)
  1. NOXAFIL [Suspect]
     Active Substance: POSACONAZOLE
     Indication: Immunosuppression
     Dosage: 300 MILLIGRAM, QD
     Route: 048
     Dates: start: 20210812, end: 20210915
  2. TACROLIMUS [Suspect]
     Active Substance: TACROLIMUS
     Indication: Transplant
     Dosage: 2 MILLIGRAM, QD
     Route: 048
     Dates: start: 20210812, end: 20210916
  3. VALGANCICLOVIR HYDROCHLORIDE [Suspect]
     Active Substance: VALGANCICLOVIR HYDROCHLORIDE
     Indication: Antiviral prophylaxis
     Dosage: 225 MILLIGRAM, QD (450 MG 1X / 2 DAYS)
     Route: 048
     Dates: start: 20210817, end: 20210917
  4. BACTRIM [Suspect]
     Active Substance: SULFAMETHOXAZOLE\TRIMETHOPRIM
     Indication: Bacterial infection
     Dosage: 400 MILLIGRAM, QD
     Route: 042
     Dates: start: 20210909, end: 20210919
  5. CELLCEPT [Suspect]
     Active Substance: MYCOPHENOLATE MOFETIL
     Indication: Liver transplant
     Dosage: 500 MILLIGRAM, QD
     Route: 042
     Dates: start: 20210814, end: 20210913

REACTIONS (1)
  - Pancytopenia [Recovering/Resolving]

NARRATIVE: CASE EVENT DATE: 20210913
